FAERS Safety Report 9107368 (Version 3)
Quarter: 2013Q2

REPORT INFORMATION
  Report Type: Report from Study
  Country: DE (occurrence: DE)
  Receive Date: 20130221
  Receipt Date: 20130501
  Transmission Date: 20140414
  Serious: Yes (Hospitalization)
  Sender: FDA-Public Use
  Company Number: DE-BRISTOL-MYERS SQUIBB COMPANY-17254319

PATIENT
  Age: 67 Year
  Sex: Female
  Weight: 50 kg

DRUGS (15)
  1. ALD518 [Suspect]
     Indication: STOMATITIS
     Route: 042
     Dates: start: 20121129, end: 20121129
  2. CISPLATIN [Suspect]
     Indication: HEAD AND NECK CANCER
     Dates: start: 20121130, end: 20121204
  3. BLINDED: PLACEBO [Suspect]
     Indication: STOMATITIS
     Route: 042
     Dates: start: 20121129, end: 20121129
  4. MOVICOL [Concomitant]
     Route: 048
  5. AMLODIPINE [Concomitant]
     Indication: HYPERTENSION
     Route: 048
     Dates: start: 20000101
  6. ACETYLSALICYLIC ACID [Concomitant]
     Indication: PROPHYLAXIS
     Route: 048
     Dates: start: 2003
  7. BISOPROLOL [Concomitant]
     Indication: HYPERTENSION
     Route: 048
     Dates: start: 2003, end: 20130109
  8. INSULIN [Concomitant]
     Indication: PANCREATIC INSUFFICIENCY
     Route: 058
     Dates: start: 2003
  9. PANCREATIN [Concomitant]
     Indication: PANCREATIC INSUFFICIENCY
     Dosage: 1DF:2TABS
     Route: 048
     Dates: start: 2003
  10. RAMIPRIL [Concomitant]
     Indication: HYPERTENSION
     Route: 048
     Dates: start: 2003
  11. SIMVASTATIN TAB [Concomitant]
     Indication: HYPERLIPIDAEMIA
     Route: 048
     Dates: start: 20030101
  12. ONDANSETRON [Concomitant]
     Indication: NAUSEA
     Route: 060
     Dates: start: 20121205
  13. METOCLOPRAMIDE [Concomitant]
     Indication: NAUSEA
     Route: 048
     Dates: start: 20121210
  14. PANTOPRAZOLE [Concomitant]
     Indication: PROPHYLAXIS
     Route: 048
     Dates: start: 20121127
  15. LORAZEPAM [Concomitant]
     Indication: ANXIETY
     Route: 048
     Dates: start: 20121129

REACTIONS (1)
  - General physical health deterioration [Recovered/Resolved]
